FAERS Safety Report 8058793-0 (Version None)
Quarter: 2012Q1

REPORT INFORMATION
  Report Type: 
  Country: None (occurrence: None)
  Receive Date: 20120120
  Receipt Date: 20120110
  Transmission Date: 20120608
  Serious: Yes (Other)
  Sender: FDA-Public Use
  Company Number: US-BAYER-2011-075690

PATIENT
  Age: 31 Year
  Sex: Female
  Weight: 54.422 kg

DRUGS (4)
  1. MULTI-VITAMIN [Concomitant]
  2. YASMIN [Suspect]
     Indication: CONTRACEPTION
     Dosage: UNK
     Dates: start: 20070101, end: 20080101
  3. CALCIUM [Concomitant]
  4. YAZ [Suspect]
     Indication: CONTRACEPTION
     Dosage: UNK
     Dates: start: 20070101, end: 20080101

REACTIONS (2)
  - PANCREATITIS [None]
  - GALLBLADDER INJURY [None]
